FAERS Safety Report 18186201 (Version 1)
Quarter: 2020Q3

REPORT INFORMATION
  Report Type: Spontaneous
  Country: US (occurrence: US)
  Receive Date: 20200824
  Receipt Date: 20200824
  Transmission Date: 20201103
  Serious: No
  Sender: FDA-Public Use
  Company Number: US-BAYER-2020-171610

PATIENT
  Sex: Male

DRUGS (2)
  1. VITAMINS NOS [Concomitant]
     Active Substance: VITAMINS
  2. CLARITIN?D 24 HOUR [Suspect]
     Active Substance: LORATADINE\PSEUDOEPHEDRINE SULFATE
     Dosage: 1 DF, QD

REACTIONS (1)
  - Product residue present [Unknown]
